FAERS Safety Report 14626545 (Version 1)
Quarter: 2018Q1

REPORT INFORMATION
  Report Type: Spontaneous
  Country: US (occurrence: US)
  Receive Date: 20180310
  Receipt Date: 20180310
  Transmission Date: 20180509
  Serious: Yes (Hospitalization)
  Sender: FDA-Public Use
  Company Number: None

PATIENT
  Age: 52 Year
  Sex: Female

DRUGS (22)
  1. CAPECITABINE 500MG TAB [Suspect]
     Active Substance: CAPECITABINE
     Indication: HEPATIC CANCER
     Dosage: 5 TABLETS
     Route: 048
     Dates: start: 201706, end: 201802
  2. CAPECITABINE 500MG TAB [Suspect]
     Active Substance: CAPECITABINE
     Indication: BONE CANCER
     Dosage: 5 TABLETS
     Route: 048
     Dates: start: 201706, end: 201802
  3. FAMOTIDINE. [Concomitant]
     Active Substance: FAMOTIDINE
  4. ZOLOFT [Concomitant]
     Active Substance: SERTRALINE HYDROCHLORIDE
  5. CAPECITABINE 500MG TAB [Suspect]
     Active Substance: CAPECITABINE
     Indication: BREAST CANCER
     Dosage: 5 TABLETS
     Route: 048
     Dates: start: 201706, end: 201802
  6. LIDOCREAM [Concomitant]
  7. BUPRPN [Concomitant]
  8. DEXAMETH [Concomitant]
     Active Substance: DEXAMETHASONE
  9. PACLOTAXEL [Concomitant]
  10. DILAUDID [Concomitant]
     Active Substance: HYDROMORPHONE HYDROCHLORIDE
  11. ROPINROLE [Concomitant]
  12. ADDERALL [Concomitant]
     Active Substance: AMPHETAMINE ASPARTATE\AMPHETAMINE SULFATE\DEXTROAMPHETAMINE SACCHARATE\DEXTROAMPHETAMINE SULFATE
  13. CEFAZOLIN [Concomitant]
     Active Substance: CEFAZOLIN
  14. ONDANSETRON [Concomitant]
     Active Substance: ONDANSETRON
  15. PROCHLORPER [Concomitant]
  16. DIPHENHYDRAM [Concomitant]
  17. HYDROMORPHON [Concomitant]
     Active Substance: HYDROMORPHONE
  18. OMEPRAZOLE. [Concomitant]
     Active Substance: OMEPRAZOLE
  19. ALPRAZOLAM. [Concomitant]
     Active Substance: ALPRAZOLAM
  20. HYZAAR [Concomitant]
     Active Substance: HYDROCHLOROTHIAZIDE\LOSARTAN POTASSIUM
  21. NORCO [Concomitant]
     Active Substance: ACETAMINOPHEN\HYDROCODONE BITARTRATE
  22. CAPECITABINE 500MG TAB [Suspect]
     Active Substance: CAPECITABINE
     Indication: MALIGNANT NEOPLASM OF PLEURA
     Dosage: 5 TABLETS
     Route: 048
     Dates: start: 201706, end: 201802

REACTIONS (4)
  - Skin exfoliation [None]
  - Nausea [None]
  - Dehydration [None]
  - Vomiting [None]

NARRATIVE: CASE EVENT DATE: 201802
